FAERS Safety Report 10543992 (Version 2)
Quarter: 2014Q4

REPORT INFORMATION
  Report Type: Spontaneous
  Country: US (occurrence: None)
  Receive Date: 20141010
  Receipt Date: 20141205
  Transmission Date: 20150529
  Serious: No
  Sender: FDA-Public Use
  Company Number: 163-POMAL-14074873

PATIENT
  Age: 71 Year
  Sex: Female
  Weight: 122 kg

DRUGS (11)
  1. FLONASE(FLUTICASONE PROPIONATE) [Concomitant]
  2. ASPIRIN (ACETYLSALICYLIC ACID) [Concomitant]
     Active Substance: ASPIRIN
  3. VITAMIN D3(COLECALCIFEROL) [Concomitant]
  4. ZETIA(EZETIMIBE) [Concomitant]
  5. AZOR(ALPRAZOLAM) [Concomitant]
  6. VITAMIN C(ASCORBIC ACID) [Concomitant]
  7. DEXAMETHASONE(DEXAMETHASONE) [Concomitant]
  8. POMALYST [Suspect]
     Active Substance: POMALIDOMIDE
     Indication: PLASMA CELL MYELOMA
     Route: 048
     Dates: start: 20140521
  9. METOPROLOL(METOPROLOL) [Concomitant]
  10. LANSOPRAZOLE(LANSOPRAZOLE) [Concomitant]
  11. LORAZEPAM(LORAZEPAM) [Concomitant]
     Active Substance: LORAZEPAM

REACTIONS (3)
  - Pain [None]
  - Oedema peripheral [None]
  - Peripheral coldness [None]

NARRATIVE: CASE EVENT DATE: 20140809
